FAERS Safety Report 10718414 (Version 1)
Quarter: 2015Q1

REPORT INFORMATION
  Report Type: Spontaneous
  Country: DK (occurrence: DK)
  Receive Date: 20150119
  Receipt Date: 20150119
  Transmission Date: 20150721
  Serious: Yes (Other)
  Sender: FDA-Public Use
  Company Number: DK-009507513-1501DNK002355

PATIENT
  Sex: Female

DRUGS (1)
  1. DIPROSPAN [Suspect]
     Active Substance: BETAMETHASONE DIPROPIONATE\BETAMETHASONE SODIUM PHOSPHATE
     Indication: HYPERSENSITIVITY
     Dosage: 1 TIME PER DAY 1 PIECE
     Route: 030
     Dates: start: 1994

REACTIONS (3)
  - Spinal compression fracture [Unknown]
  - Back pain [Unknown]
  - Osteoporosis [Not Recovered/Not Resolved]

NARRATIVE: CASE EVENT DATE: 2013
